FAERS Safety Report 11394713 (Version 1)
Quarter: 2015Q3

REPORT INFORMATION
  Report Type: Spontaneous
  Country: US (occurrence: None)
  Receive Date: 20150817
  Receipt Date: 20150817
  Transmission Date: 20151125
  Serious: Yes (Other)
  Sender: FDA-Public Use
  Company Number: US2015114163

PATIENT
  Age: 56 Year

DRUGS (1)
  1. GAVISCON EXTRA STRENGTH [Suspect]
     Active Substance: ALUMINUM HYDROXIDE\MAGNESIUM CARBONATE
     Indication: GASTROOESOPHAGEAL REFLUX DISEASE
     Dates: start: 20150730, end: 20150806

REACTIONS (8)
  - Throat irritation [None]
  - Malaise [None]
  - Haematochezia [None]
  - Anorectal discomfort [None]
  - Dry throat [None]
  - Abdominal discomfort [None]
  - Rectal haemorrhage [None]
  - Decreased appetite [None]
